FAERS Safety Report 5068778-4 (Version None)
Quarter: 2006Q3

REPORT INFORMATION
  Report Type: 
  Country: None (occurrence: None)
  Receive Date: 20060802
  Receipt Date: 20060328
  Transmission Date: 20061208
  Serious: Yes (Hospitalization, Other)
  Sender: FDA-Public Use
  Company Number: US-BRISTOL-MYERS SQUIBB COMPANY-13329503

PATIENT
  Age: 45 Year
  Sex: Male

DRUGS (1)
  1. COUMADIN [Suspect]
     Dosage: STARTED TAKING WARFARIN SODIUM 3 MG TABLETS 2 TO 3 TABLETS DAILY
     Dates: start: 20051101

REACTIONS (3)
  - CEREBROVASCULAR ACCIDENT [None]
  - DRUG INEFFECTIVE [None]
  - INTERNATIONAL NORMALISED RATIO DECREASED [None]
